FAERS Safety Report 4279878-0 (Version None)
Quarter: 2004Q1

REPORT INFORMATION
  Report Type: 
  Country: None (occurrence: None)
  Receive Date: 20040126
  Receipt Date: 20040108
  Transmission Date: 20041129
  Serious: Yes (Other)
  Sender: FDA-Public Use
  Company Number: 8004658

PATIENT
  Age: 35 Year
  Sex: Female

DRUGS (4)
  1. KEPPRA [Suspect]
     Indication: EPILEPSY
  2. VALPROATE SODIUM [Concomitant]
  3. NEURONTIN [Concomitant]
  4. EPITOMAX [Concomitant]

REACTIONS (5)
  - CEREBROVASCULAR ACCIDENT [None]
  - DIALYSIS [None]
  - EPILEPSY [None]
  - RENAL FAILURE CHRONIC [None]
  - THROMBOCYTOPENIA [None]
